FAERS Safety Report 8867293 (Version 1)
Quarter: 2012Q4

REPORT INFORMATION
  Report Type: 
  Country: US (occurrence: US)
  Receive Date: 20121025
  Receipt Date: 20121025
  Transmission Date: 20130627
  Serious: No
  Sender: FDA-Public Use
  Company Number: US-AMGEN-USASP2012015899

PATIENT
  Sex: Female

DRUGS (5)
  1. ENBREL [Suspect]
     Indication: PRODUCT USED FOR UNKNOWN INDICATION
     Dosage: 50 mg, qwk
     Route: 058
  2. ADVIL                              /00044201/ [Concomitant]
  3. LISINOPRIL [Concomitant]
     Dosage: 10 mg, UNK
  4. ASPIRIN LOW [Concomitant]
     Dosage: 81 mg, UNK
  5. TYLENOL /00020001/ [Concomitant]

REACTIONS (4)
  - Fatigue [Unknown]
  - Aphagia [Unknown]
  - Localised infection [Unknown]
  - Diarrhoea [Unknown]
